FAERS Safety Report 4953543-6 (Version None)
Quarter: 2006Q1

REPORT INFORMATION
  Report Type: 
  Country: None (occurrence: None)
  Receive Date: 20060324
  Receipt Date: 20060317
  Transmission Date: 20060701
  Serious: Yes (Hospitalization)
  Sender: FDA-Public Use
  Company Number: US-ABBOTT-06P-163-0328344-00

PATIENT
  Sex: Female
  Weight: 73.548 kg

DRUGS (2)
  1. SYNTHROID [Suspect]
     Indication: HYPOTHYROIDISM
     Route: 048
  2. SYNTHROID [Suspect]
     Route: 048
     Dates: start: 19650101

REACTIONS (6)
  - ALOPECIA [None]
  - AUTOIMMUNE THYROIDITIS [None]
  - FALL [None]
  - FATIGUE [None]
  - JOINT SPRAIN [None]
  - ROAD TRAFFIC ACCIDENT [None]
